FAERS Safety Report 16378665 (Version 1)
Quarter: 2019Q2

REPORT INFORMATION
  Report Type: Spontaneous
  Country: US (occurrence: US)
  Receive Date: 20190531
  Receipt Date: 20190531
  Transmission Date: 20190711
  Serious: Yes (Other)
  Sender: FDA-Public Use
  Company Number: US-SA-2019SA144943

PATIENT
  Age: 78 Year
  Sex: Female

DRUGS (1)
  1. LANTUS [Suspect]
     Active Substance: INSULIN GLARGINE
     Indication: TYPE 2 DIABETES MELLITUS
     Dosage: 50 TO 54UNITS, QD
     Route: 065

REACTIONS (4)
  - Loss of consciousness [Unknown]
  - Confusional state [Unknown]
  - Product taste abnormal [Unknown]
  - Overdose [Unknown]
